FAERS Safety Report 6898120-5 (Version None)
Quarter: 2010Q3

REPORT INFORMATION
  Report Type: 
  Country: None (occurrence: None)
  Receive Date: 20100802
  Receipt Date: 20070918
  Transmission Date: 20110219
  Serious: Yes (Other)
  Sender: FDA-Public Use
  Company Number: US-PFIZER INC-2007066388

PATIENT
  Sex: Male
  Weight: 81.6 kg

DRUGS (6)
  1. LYRICA [Suspect]
     Indication: NEURALGIA
     Dates: start: 20070731
  2. ACETYLSALICYLIC ACID SRT [Concomitant]
  3. VITAMINS [Concomitant]
  4. BENADRYL [Concomitant]
  5. PRILOSEC [Concomitant]
  6. XANAX [Concomitant]

REACTIONS (6)
  - DIZZINESS [None]
  - DRUG INEFFECTIVE [None]
  - FEELING ABNORMAL [None]
  - INSOMNIA [None]
  - NERVOUSNESS [None]
  - NEURALGIA [None]
